FAERS Safety Report 11928703 (Version 1)
Quarter: 2016Q1

REPORT INFORMATION
  Report Type: Spontaneous
  Country: TR (occurrence: TR)
  Receive Date: 20160119
  Receipt Date: 20160119
  Transmission Date: 20160526
  Serious: Yes (Death, Other)
  Sender: FDA-Public Use
  Company Number: TR-PFIZER INC-2016003539

PATIENT
  Age: 27 Month
  Sex: Female
  Weight: 12 kg

DRUGS (1)
  1. SULFASALAZINE. [Suspect]
     Active Substance: SULFASALAZINE
     Indication: COLITIS
     Dosage: 50 MG/KG, DAILY

REACTIONS (3)
  - Drug ineffective [Unknown]
  - Colitis [Fatal]
  - Chronic granulomatous disease [Fatal]
